FAERS Safety Report 9455895 (Version 1)
Quarter: 2013Q3

REPORT INFORMATION
  Report Type: Spontaneous
  Country: GB (occurrence: GB)
  Receive Date: 20130813
  Receipt Date: 20130813
  Transmission Date: 20140515
  Serious: Yes (Other)
  Sender: FDA-Public Use
  Company Number: GB-JNJFOC-20130803748

PATIENT
  Sex: 0

DRUGS (2)
  1. INFLIXIMAB, RECOMBINANT [Suspect]
     Indication: CROHN^S DISEASE
     Route: 042
  2. HYDROCORTISONE [Concomitant]
     Indication: PREMEDICATION
     Route: 042

REACTIONS (4)
  - Intestinal stenosis [Unknown]
  - Infusion related reaction [Unknown]
  - Drug effect decreased [Unknown]
  - Drug effect decreased [Unknown]
